FAERS Safety Report 25169360 (Version 2)
Quarter: 2025Q2

REPORT INFORMATION
  Report Type: Spontaneous
  Country: US (occurrence: US)
  Receive Date: 20250407
  Receipt Date: 20250523
  Transmission Date: 20250716
  Serious: No
  Sender: MYLAN
  Company Number: US-MYLANLABS-2025M1028789

PATIENT
  Sex: Female
  Weight: 65.8 kg

DRUGS (15)
  1. REVATIO [Suspect]
     Active Substance: SILDENAFIL CITRATE
     Indication: Product used for unknown indication
  2. TYVASO [Suspect]
     Active Substance: TREPROSTINIL
     Indication: Pulmonary arterial hypertension
  3. TYVASO [Suspect]
     Active Substance: TREPROSTINIL
     Dosage: 54 MICROGRAM, QID ((9 BREATHS, FOUR TIMES A DAY)
  4. LIPITOR [Concomitant]
     Active Substance: ATORVASTATIN CALCIUM
  5. ZYRTEC [Concomitant]
     Active Substance: CETIRIZINE HYDROCHLORIDE
  6. CLARITIN [Concomitant]
     Active Substance: LORATADINE
  7. PEPCID [Concomitant]
     Active Substance: FAMOTIDINE
  8. OPSUMIT [Concomitant]
     Active Substance: MACITENTAN
  9. TRACLEER [Concomitant]
     Active Substance: BOSENTAN
  10. NEURONTIN [Concomitant]
     Active Substance: GABAPENTIN
  11. FLUTICASONE PROPIONATE [Concomitant]
     Active Substance: FLUTICASONE PROPIONATE
  12. VITAMIN D3 [Concomitant]
     Active Substance: CHOLECALCIFEROL
  13. IBUPROFEN [Concomitant]
     Active Substance: IBUPROFEN
  14. B12 active [Concomitant]
  15. IRON [Concomitant]
     Active Substance: IRON

REACTIONS (6)
  - Cheilitis [Unknown]
  - Stomatitis [Unknown]
  - Fatigue [Unknown]
  - Abdominal distension [Unknown]
  - Dyspepsia [Unknown]
  - Dizziness [Unknown]
